FAERS Safety Report 7641575-9 (Version None)
Quarter: 2011Q3

REPORT INFORMATION
  Report Type: 
  Country: None (occurrence: None)
  Receive Date: 20110727
  Receipt Date: 20110727
  Transmission Date: 20111222
  Serious: Yes (Death)
  Sender: FDA-Public Use
  Company Number: None

PATIENT
  Age: 67 Year
  Sex: Male
  Weight: 77 kg

DRUGS (11)
  1. ANCEF [Concomitant]
  2. ZESTRIL [Concomitant]
  3. MULTI-VITAMIN [Concomitant]
  4. ZINC SULFATE [Concomitant]
  5. XANAX [Concomitant]
  6. ASCORBIC ACID [Concomitant]
  7. CLEOCIN PHOSPHATE [Concomitant]
  8. TRANDATE [Concomitant]
  9. ZOLOFT [Concomitant]
  10. NEUTROSPEC [Suspect]
     Indication: PREOPERATIVE CARE
     Dosage: 17.5 MG, X1 IV
     Route: 042
     Dates: start: 20050502
  11. NEUTROSPEC [Suspect]
     Indication: INVESTIGATION
     Dosage: 17.5 MG, X1 IV
     Route: 042
     Dates: start: 20050502

REACTIONS (1)
  - CARDIO-RESPIRATORY ARREST [None]
